FAERS Safety Report 4342865-8 (Version None)
Quarter: 2004Q2

REPORT INFORMATION
  Report Type: 
  Country: None (occurrence: None)
  Receive Date: 20040420
  Receipt Date: 20040420
  Transmission Date: 20050107
  Serious: Yes (Other)
  Sender: FDA-Public Use
  Company Number: None

PATIENT
  Age: 70 Year
  Sex: Female
  Weight: 54.4316 kg

DRUGS (9)
  1. METFORMIN HCL [Suspect]
     Indication: DIABETES MELLITUS
     Dosage: 250 MG PO AM
     Route: 048
     Dates: start: 20040103
  2. LEVOXYL [Concomitant]
  3. LISINOPRIL [Concomitant]
  4. CALCIUM CARBONATE [Concomitant]
  5. ESTRADERM [Concomitant]
  6. LIPITOR [Concomitant]
  7. RANITIDINE [Concomitant]
  8. CELEBREX [Concomitant]
  9. ZYRTEC [Concomitant]

REACTIONS (2)
  - DIABETES MELLITUS INADEQUATE CONTROL [None]
  - PHARMACEUTICAL PRODUCT COMPLAINT [None]
